FAERS Safety Report 20921892 (Version 2)
Quarter: 2022Q3

REPORT INFORMATION
  Report Type: Spontaneous
  Country: IT (occurrence: IT)
  Receive Date: 20220607
  Receipt Date: 20220711
  Transmission Date: 20221026
  Serious: Yes (Hospitalization)
  Sender: FDA-Public Use
  Company Number: IT-MYLANLABS-2022M1013570

PATIENT
  Age: 62 Year
  Sex: Male

DRUGS (16)
  1. OXYCODONE [Suspect]
     Active Substance: OXYCODONE
     Indication: Postoperative analgesia
     Dosage: 9 MILLIGRAM, ONCE A DAY
     Route: 051
     Dates: start: 20210616
  2. OXYCODONE [Suspect]
     Active Substance: OXYCODONE
     Dosage: 9 MILLIGRAM, ONCE A DAY (3 MG, TID)
     Route: 065
     Dates: start: 20210616
  3. OXYCODONE [Suspect]
     Active Substance: OXYCODONE
     Dosage: 20 MILLIGRAM, ONCE A DAY
     Route: 065
     Dates: start: 20210616
  4. OXYCODONE [Suspect]
     Active Substance: OXYCODONE
     Indication: Pain
     Dosage: 20 MILLIGRAM, ONCE A DAY (10MG,BID )
     Route: 048
     Dates: start: 20210616
  5. SUFENTANIL [Suspect]
     Active Substance: SUFENTANIL
     Indication: Postoperative analgesia
     Dosage: 1 MICROGRAM (SOLUTION RATE 5 ML / H)
     Route: 051
     Dates: start: 20210611, end: 20210615
  6. TRAMADOL [Suspect]
     Active Substance: TRAMADOL
     Indication: Pain
     Dosage: 200 MILLIGRAM, ONCE A DAY
     Route: 051
     Dates: start: 20210611, end: 20210615
  7. TRAMADOL [Suspect]
     Active Substance: TRAMADOL
     Indication: Postoperative analgesia
  8. ACETAMINOPHEN\OXYCODONE HYDROCHLORIDE [Concomitant]
     Active Substance: ACETAMINOPHEN\OXYCODONE HYDROCHLORIDE
     Indication: Product used for unknown indication
     Dosage: 1 DOSAGE FORM
     Route: 065
  9. ACETAMINOPHEN\OXYCODONE HYDROCHLORIDE [Concomitant]
     Active Substance: ACETAMINOPHEN\OXYCODONE HYDROCHLORIDE
     Dosage: 1 DOSAGE FORM
     Route: 065
  10. ACETAMINOPHEN [Concomitant]
     Active Substance: ACETAMINOPHEN
     Indication: Pain
     Dosage: 1000 MILLIGRAM
     Route: 048
  11. NALDEMEDINE [Concomitant]
     Active Substance: NALDEMEDINE
     Indication: Product used for unknown indication
     Dosage: 200 MICROGRAM, ONCE A DAY
  12. NALDEMEDINE [Concomitant]
     Active Substance: NALDEMEDINE
     Dosage: UNK (1 TABLET)
     Route: 065
  13. OXYCODONE [Concomitant]
     Active Substance: OXYCODONE
     Indication: Product used for unknown indication
     Dosage: 20 MILLIGRAM, ONCE A DAY (10 MILLIGRAM, BID)
     Route: 065
  14. OXYCODONE [Concomitant]
     Active Substance: OXYCODONE
     Dosage: 20 MILLIGRAM, ONCE A DAY (10 MILLIGRAM, BID)
     Route: 065
  15. OXYCODONE [Concomitant]
     Active Substance: OXYCODONE
     Dosage: 9 MILLIGRAM, ONCE A DAY (3 MILLIGRAM, TID)
     Route: 042
  16. ROPIVACAINE [Concomitant]
     Active Substance: ROPIVACAINE
     Indication: Postoperative analgesia
     Dosage: 0.13 MILLIGRAM PER MILLILITRE (0.125 MILLIGRAM PER MILLILITRE)
     Route: 051
     Dates: start: 20210611, end: 20210615

REACTIONS (4)
  - Condition aggravated [Unknown]
  - Constipation [Recovered/Resolved]
  - Urticaria [Unknown]
  - Drug ineffective [Unknown]
